FAERS Safety Report 5162605-2 (Version None)
Quarter: 2006Q4

REPORT INFORMATION
  Report Type: 
  Country: None (occurrence: None)
  Receive Date: 20061201
  Receipt Date: 20061127
  Transmission Date: 20070319
  Serious: Yes (Death)
  Sender: FDA-Public Use
  Company Number: CA-SOLVAY-00306003867

PATIENT
  Age: 17882 Day
  Sex: Female

DRUGS (11)
  1. VENLAFAXIINE HCL [Concomitant]
     Indication: DEPRESSION
     Dosage: DAILY DOSE: 75 MILLIGRAM(S)
     Route: 048
     Dates: end: 20060901
  2. MARINOL [Suspect]
     Indication: DECREASED APPETITE
     Dosage: DAILY DOSE: 5 MILLIGRAM(S)
     Route: 048
     Dates: start: 20060802, end: 20060814
  3. PANTOPRAZOLE SODIUM [Concomitant]
     Indication: GASTROOESOPHAGEAL REFLUX DISEASE
     Dosage: DAILY DOSE: 40 MILLIGRAM(S)
     Route: 048
     Dates: end: 20060901
  4. METOCLOPRAMIDE [Concomitant]
     Indication: PROPHYLAXIS OF NAUSEA AND VOMITING
     Dosage: DAILY DOSE: 30 MILLIGRAM(S)
     Route: 048
     Dates: end: 20060901
  5. EXEMESTANE [Concomitant]
     Indication: BREAST CANCER
     Dosage: DAILY DOSE: 25 MILLIGRAM(S)
     Route: 048
     Dates: end: 20060901
  6. GABAPENTIN [Concomitant]
     Indication: PAIN
     Dosage: DAILY DOSE: 1200 MILLIGRAM(S)
     Route: 048
     Dates: end: 20060901
  7. METHADONE HCL [Concomitant]
     Indication: PAIN
     Dosage: DAILY DOSE: 270 MILLIGRAM(S)
     Route: 048
     Dates: start: 20060809, end: 20060901
  8. METHADONE HCL [Concomitant]
     Dosage: DAILY DOSE:   25MG AS NEEDED, VARIES
     Route: 048
     Dates: start: 20060809, end: 20060901
  9. DEXAMETHADONE [Concomitant]
     Indication: PAIN
     Dosage: DAILY DOSE: 1 MILLIGRAM(S) ON TAPERING REGIMEN
     Route: 048
     Dates: end: 20060901
  10. TEMAZEPAM [Concomitant]
     Indication: INSOMNIA
     Dosage: DAILY DOSE:  15 MG AS NEEDED
     Route: 048
     Dates: start: 20060730, end: 20060730
  11. CLODRONATE [Concomitant]
     Indication: METASTASES TO BONE
     Dosage: 1500 MG TWO WEEKLY, STARTED MORE THAN 2 MONTH AGO
     Route: 058
     Dates: end: 20060901

REACTIONS (2)
  - DEATH [None]
  - METASTASES TO MENINGES [None]
